FAERS Safety Report 8539999-0 (Version None)
Quarter: 2012Q3

REPORT INFORMATION
  Report Type: 
  Country: None (occurrence: None)
  Receive Date: 20120726
  Receipt Date: 20120712
  Transmission Date: 20120928
  Serious: Yes (Hospitalization)
  Sender: FDA-Public Use
  Company Number: SE-AMGEN-SWESP2012044965

PATIENT
  Age: 49 Year
  Sex: Female

DRUGS (7)
  1. ENBREL [Suspect]
     Indication: RHEUMATOID ARTHRITIS
     Dosage: UNK
     Route: 058
     Dates: start: 20120423, end: 20120515
  2. CIMZIA [Suspect]
     Indication: RHEUMATOID ARTHRITIS
     Dosage: 200 MGC (400MG)
     Route: 058
     Dates: start: 20120112, end: 20120207
  3. SPIRONOLACTONE [Concomitant]
     Dosage: UNK
  4. METHOTREXATE [Suspect]
     Indication: RHEUMATOID ARTHRITIS
     Dosage: 20 MG, WEEKLY
     Route: 048
     Dates: start: 20110503, end: 20110801
  5. METHOTREXATE SODIUM [Suspect]
     Indication: RHEUMATOID ARTHRITIS
     Dosage: 25 MG, WEEKLY
     Route: 058
     Dates: start: 20110801, end: 20120515
  6. ENALAPRIL COMP SANDOZ [Concomitant]
     Dosage: 20 UNK, UNK
  7. HUMIRA [Suspect]
     Indication: RHEUMATOID ARTHRITIS
     Dosage: 40 MCG (40 MG EVERY SECOND WEEK)
     Route: 058
     Dates: start: 20120207, end: 20120402

REACTIONS (2)
  - TUBULOINTERSTITIAL NEPHRITIS [None]
  - RASH [None]
